FAERS Safety Report 9915498 (Version 2)
Quarter: 2014Q1

REPORT INFORMATION
  Report Type: Spontaneous
  Country: US (occurrence: US)
  Receive Date: 20140221
  Receipt Date: 20140307
  Transmission Date: 20141002
  Serious: Yes (Hospitalization)
  Sender: FDA-Public Use
  Company Number: US-AMGEN-USASP2014012209

PATIENT
  Age: 58 Year
  Sex: Female

DRUGS (1)
  1. ENBREL [Suspect]
     Indication: RHEUMATOID ARTHRITIS
     Dosage: 50 MG, QWK
     Route: 065
     Dates: start: 201109, end: 201401

REACTIONS (4)
  - Nerve compression [Recovered/Resolved]
  - Oesophageal spasm [Recovered/Resolved]
  - Incisional drainage [Recovering/Resolving]
  - Myalgia [Recovering/Resolving]
